FAERS Safety Report 16087897 (Version 1)
Quarter: 2019Q1

REPORT INFORMATION
  Report Type: Spontaneous
  Country: US (occurrence: US)
  Receive Date: 20190319
  Receipt Date: 20190319
  Transmission Date: 20190418
  Serious: No
  Sender: FDA-Public Use
  Company Number: US-TEVA-2019-US-1019531

PATIENT
  Age: 76 Year
  Sex: Male

DRUGS (1)
  1. CARBIDOPA AND LEVODOPA [Suspect]
     Active Substance: CARBIDOPA\LEVODOPA
     Route: 065

REACTIONS (5)
  - Breath odour [Unknown]
  - Dysgeusia [Unknown]
  - Dry mouth [Unknown]
  - Decreased appetite [Unknown]
  - Tinnitus [Unknown]
